FAERS Safety Report 15274150 (Version 2)
Quarter: 2018Q3

REPORT INFORMATION
  Report Type: Spontaneous
  Country: US (occurrence: US)
  Receive Date: 20180814
  Receipt Date: 20180904
  Transmission Date: 20181010
  Serious: Yes (Other)
  Sender: FDA-Public Use
  Company Number: US-009507513-1808USA004022

PATIENT
  Age: 79 Year
  Sex: Male

DRUGS (3)
  1. DOXYCYCLINE. [Concomitant]
     Active Substance: DOXYCYCLINE
     Dosage: 40 MG, TWICE DAILY
  2. DOXYCYCLINE. [Concomitant]
     Active Substance: DOXYCYCLINE
     Indication: ORAL LICHEN PLANUS
     Dosage: 20 MG, QD
  3. KEYTRUDA [Suspect]
     Active Substance: PEMBROLIZUMAB
     Indication: NON-SMALL CELL LUNG CANCER STAGE IV
     Dosage: 200 MG, EVERY 3 WEEKS
     Dates: start: 2016

REACTIONS (2)
  - Granuloma annulare [Recovered/Resolved]
  - Lichen planus [Recovering/Resolving]
